FAERS Safety Report 6638536-5 (Version None)
Quarter: 2010Q1

REPORT INFORMATION
  Report Type: 
  Country: None (occurrence: None)
  Receive Date: 20100317
  Receipt Date: 20100310
  Transmission Date: 20100710
  Serious: Yes (Hospitalization)
  Sender: FDA-Public Use
  Company Number: US-BRISTOL-MYERS SQUIBB COMPANY-15012917

PATIENT
  Age: 74 Year
  Sex: Male
  Weight: 90 kg

DRUGS (3)
  1. CISPLATIN [Suspect]
     Indication: BLADDER CANCER
     Dosage: DAY 1 12FEB-12FEB10, INTERRUPTED ON 15FEB2010
     Route: 042
     Dates: start: 20100212
  2. SUTENT [Suspect]
     Indication: BLADDER CANCER
     Dosage: DAY 1-14,12FEB-14FEB10,INTERRUPTED ON 15FEB2010
     Route: 048
     Dates: start: 20100212
  3. GEMZAR [Suspect]
     Indication: BLADDER CANCER
     Dosage: DAY 1 + 8,12FEB-12FEB10, INTERRUPTED ON 15FEB2010
     Route: 042
     Dates: start: 20100212

REACTIONS (5)
  - ABDOMINAL DISTENSION [None]
  - BLADDER PAIN [None]
  - BLOOD SODIUM DECREASED [None]
  - HAEMOGLOBIN DECREASED [None]
  - SYNCOPE [None]
